FAERS Safety Report 7314944-4 (Version None)
Quarter: 2011Q1

REPORT INFORMATION
  Report Type: 
  Country: None (occurrence: None)
  Receive Date: 20110225
  Receipt Date: 20100301
  Transmission Date: 20110831
  Serious: No
  Sender: FDA-Public Use
  Company Number: US-MYLANLABS-2010S1002290

PATIENT
  Age: 18 Year
  Sex: Female
  Weight: 58.97 kg

DRUGS (4)
  1. AMNESTEEM [Suspect]
     Indication: ACNE CYSTIC
     Route: 048
     Dates: start: 20090901
  2. AMNESTEEM [Suspect]
     Route: 048
     Dates: start: 20090901
  3. AMNESTEEM [Suspect]
     Route: 048
  4. AMNESTEEM [Suspect]
     Route: 048

REACTIONS (1)
  - ASPARTATE AMINOTRANSFERASE INCREASED [None]
